FAERS Safety Report 5301242-3 (Version None)
Quarter: 2007Q2

REPORT INFORMATION
  Report Type: 
  Country: None (occurrence: None)
  Receive Date: 20070411
  Receipt Date: 20070326
  Transmission Date: 20071010
  Serious: Yes (Death)
  Sender: FDA-Public Use
  Company Number: 2007000558

PATIENT
  Sex: Female

DRUGS (1)
  1. ERLOTINIB / PLACEBO (TABLET) (ERLOTINIB HCL) [Suspect]
     Indication: NON-SMALL CELL LUNG CANCER
     Dosage: 150 MG QD, ORAL
     Route: 048
     Dates: start: 20061230

REACTIONS (1)
  - SUDDEN DEATH [None]
